FAERS Safety Report 13746597 (Version 2)
Quarter: 2017Q3

REPORT INFORMATION
  Report Type: Spontaneous
  Country: US (occurrence: US)
  Receive Date: 20170712
  Receipt Date: 20170907
  Transmission Date: 20171127
  Serious: Yes (Other)
  Sender: FDA-Public Use
  Company Number: US-BAYER-2017-134117

PATIENT
  Age: 25 Year
  Sex: Female
  Weight: 102.49 kg

DRUGS (4)
  1. MIRENA [Suspect]
     Active Substance: LEVONORGESTREL
     Indication: CONTRACEPTION
     Dosage: 20 MCG/24HR, CONT
     Route: 015
     Dates: start: 20170525, end: 20170706
  2. NAPROXEN. [Concomitant]
     Active Substance: NAPROXEN
     Dosage: UNK
     Route: 048
  3. ORTHO-CEPT [Concomitant]
     Active Substance: DESOGESTREL\ETHINYL ESTRADIOL
     Dosage: 1 DF, QD
     Route: 048
     Dates: start: 20170706
  4. CYTOTEC [Concomitant]
     Active Substance: MISOPROSTOL
     Route: 048

REACTIONS (7)
  - Dyspareunia [None]
  - Device dislocation [None]
  - Menstruation irregular [None]
  - Ovarian cyst [None]
  - Mood swings [None]
  - Dysmenorrhoea [None]
  - Menorrhagia [None]

NARRATIVE: CASE EVENT DATE: 2017
